FAERS Safety Report 18524944 (Version 1)
Quarter: 2020Q4

REPORT INFORMATION
  Report Type: Other
  Country: US (occurrence: US)
  Receive Date: 20201120
  Receipt Date: 20201120
  Transmission Date: 20210114
  Serious: Yes (Life-Threatening, Hospitalization, Other)
  Sender: FDA-Public Use
  Company Number: US-COREPHARMA LLC-2096111

PATIENT
  Age: 68 Year
  Sex: Female

DRUGS (1)
  1. LISINOPRIL AND HYDROCHLOROTHIAZIDE [Suspect]
     Active Substance: HYDROCHLOROTHIAZIDE\LISINOPRIL
     Indication: HYPERTENSION
     Route: 065

REACTIONS (5)
  - Pancreatitis necrotising [Not Recovered/Not Resolved]
  - Septic shock [Unknown]
  - Renal failure [Unknown]
  - Respiratory failure [Unknown]
  - Pancreatitis acute [Not Recovered/Not Resolved]
